FAERS Safety Report 25922959 (Version 1)
Quarter: 2025Q4

REPORT INFORMATION
  Report Type: Spontaneous
  Country: UA (occurrence: UA)
  Receive Date: 20251015
  Receipt Date: 20251015
  Transmission Date: 20260119
  Serious: Yes (Life-Threatening, Other)
  Sender: DEXCEL LTD.
  Company Number: UA-DEXPHARM-2025-4869

PATIENT
  Age: 52 Year
  Sex: Female

DRUGS (2)
  1. VENLAFAXINE HYDROCHLORIDE [Suspect]
     Active Substance: VENLAFAXINE HYDROCHLORIDE
     Indication: Depression
     Route: 050
     Dates: start: 20251001, end: 20251003
  2. Quetiron 25 mg [Concomitant]
     Indication: Depression
     Dosage: ONE TABLET ONCE A DAY IN THE EVENING
     Dates: start: 20251001

REACTIONS (1)
  - Hypertensive crisis [Recovered/Resolved]

NARRATIVE: CASE EVENT DATE: 20251003
